FAERS Safety Report 18288782 (Version 3)
Quarter: 2020Q4

REPORT INFORMATION
  Report Type: Spontaneous
  Country: US (occurrence: US)
  Receive Date: 20200921
  Receipt Date: 20201123
  Transmission Date: 20210113
  Serious: No
  Sender: FDA-Public Use
  Company Number: US-PFIZER INC-2018368701

PATIENT
  Age: 53 Year
  Sex: Female

DRUGS (6)
  1. IRBESARTAN. [Concomitant]
     Active Substance: IRBESARTAN
     Dosage: UNK
  2. OLMESARTAN [Concomitant]
     Active Substance: OLMESARTAN
     Dosage: UNK
  3. XELJANZ [Suspect]
     Active Substance: TOFACITINIB CITRATE
     Indication: COLITIS ULCERATIVE
  4. XELJANZ [Suspect]
     Active Substance: TOFACITINIB CITRATE
     Indication: SPONDYLOARTHROPATHY
     Dosage: 5 MG, 2X/DAY
     Route: 048
     Dates: start: 2018
  5. CRESTOR [Concomitant]
     Active Substance: ROSUVASTATIN CALCIUM
     Dosage: UNK
  6. XELJANZ [Suspect]
     Active Substance: TOFACITINIB CITRATE
     Indication: ANKYLOSING SPONDYLITIS
     Dosage: 5 MG

REACTIONS (7)
  - Therapeutic response unexpected [Unknown]
  - Depression [Unknown]
  - Product dose omission issue [Unknown]
  - Blood cholesterol increased [Unknown]
  - Abdominal pain lower [Unknown]
  - Hypertension [Unknown]
  - Anxiety [Unknown]
